FAERS Safety Report 5607854-1 (Version None)
Quarter: 2008Q1

REPORT INFORMATION
  Report Type: 
  Country: None (occurrence: None)
  Receive Date: 20080130
  Receipt Date: 20080123
  Transmission Date: 20080703
  Serious: No
  Sender: FDA-Public Use
  Company Number: US-BAYER-200714863NA

PATIENT
  Age: 58 Year
  Sex: Male

DRUGS (6)
  1. NEXAVAR [Suspect]
     Indication: HEPATIC NEOPLASM MALIGNANT
     Dosage: TOTAL DAILY DOSE: 800 MG  UNIT DOSE: 200 MG
     Route: 048
  2. SPIRONOLACTONE [Concomitant]
     Indication: SWELLING
  3. LACTULOSE [Concomitant]
     Indication: LOSS OF CONSCIOUSNESS
     Dates: start: 20070901
  4. MULTI-VITAMIN [Concomitant]
     Dates: start: 20070401
  5. IRON [Concomitant]
     Dates: start: 20070401
  6. FLU SHOT [Concomitant]
     Dates: start: 20071101

REACTIONS (6)
  - ABDOMINAL DISTENSION [None]
  - DIARRHOEA [None]
  - NAUSEA [None]
  - OEDEMA PERIPHERAL [None]
  - UNEVALUABLE EVENT [None]
  - VOMITING [None]
